FAERS Safety Report 6242421-0 (Version None)
Quarter: 2009Q2

REPORT INFORMATION
  Report Type: 
  Country: None (occurrence: None)
  Receive Date: 20090622
  Receipt Date: 20090622
  Transmission Date: 20091009
  Serious: Yes (Life-Threatening)
  Sender: FDA-Public Use
  Company Number: None

PATIENT
  Age: 55 Year
  Sex: Male
  Weight: 106.5 kg

DRUGS (4)
  1. LORAZEPAM [Suspect]
     Indication: ANXIETY
     Dosage: 1MG X 2 DOSES IV 2 DOSES
     Route: 042
     Dates: start: 20090430, end: 20090430
  2. LORAZEPAM [Suspect]
     Indication: CONVULSION
     Dosage: 1MG X 2 DOSES IV 2 DOSES
     Route: 042
     Dates: start: 20090430, end: 20090430
  3. LORAZEPAM [Suspect]
     Indication: RESTLESSNESS
     Dosage: 1MG X 2 DOSES IV 2 DOSES
     Route: 042
     Dates: start: 20090430, end: 20090430
  4. ERTAPENEM 1000 MG [Suspect]
     Indication: INFECTION
     Dosage: 1000 MG Q 24 HOURS IV
     Route: 042
     Dates: start: 20090424, end: 20090430

REACTIONS (8)
  - AGGRESSION [None]
  - BLOOD GLUCOSE DECREASED [None]
  - BLOOD GLUCOSE INCREASED [None]
  - CONVULSION [None]
  - DYSKINESIA [None]
  - ELECTROLYTE IMBALANCE [None]
  - EYE ROLLING [None]
  - HALLUCINATION [None]
